FAERS Safety Report 20531846 (Version 2)
Quarter: 2022Q1

REPORT INFORMATION
  Report Type: Spontaneous
  Country: US (occurrence: US)
  Receive Date: 20220301
  Receipt Date: 20220304
  Transmission Date: 20220423
  Serious: No
  Sender: FDA-Public Use
  Company Number: US-NOVARTISTESTPH-NVSC2022US046291

PATIENT
  Sex: Female

DRUGS (1)
  1. CLINDAMYCIN PHOSPHATE [Suspect]
     Active Substance: CLINDAMYCIN PHOSPHATE
     Indication: Product used for unknown indication
     Route: 061

REACTIONS (5)
  - Condition aggravated [Unknown]
  - Adverse drug reaction [Unknown]
  - Pruritus [Unknown]
  - Urticaria [Unknown]
  - Product dose omission issue [Unknown]
